FAERS Safety Report 8119257-9 (Version None)
Quarter: 2012Q1

REPORT INFORMATION
  Report Type: 
  Country: None (occurrence: None)
  Receive Date: 20120207
  Receipt Date: 20120125
  Transmission Date: 20120608
  Serious: Yes (Hospitalization)
  Sender: FDA-Public Use
  Company Number: GB-ELI_LILLY_AND_COMPANY-GB201201002052

PATIENT
  Age: 34 Year
  Sex: Male

DRUGS (2)
  1. CLONAZEPAM [Concomitant]
     Dosage: 1 MG, UNKNOWN
     Route: 048
  2. OLANZAPINE [Suspect]
     Indication: SCHIZOPHRENIA
     Dosage: 300 MG, EVERY TWO WEEKS
     Route: 030
     Dates: start: 20110707

REACTIONS (10)
  - ANXIETY [None]
  - GAIT DISTURBANCE [None]
  - AGITATION [None]
  - DISORIENTATION [None]
  - SEDATION [None]
  - CONFUSIONAL STATE [None]
  - THIRST [None]
  - POST PROCEDURAL COMPLICATION [None]
  - FEELING DRUNK [None]
  - ALCOHOL USE [None]
